FAERS Safety Report 22605543 (Version 1)
Quarter: 2023Q2

REPORT INFORMATION
  Report Type: Spontaneous
  Country: GB (occurrence: GB)
  Receive Date: 20230615
  Receipt Date: 20230615
  Transmission Date: 20230721
  Serious: Yes (Other)
  Sender: FDA-Public Use
  Company Number: GB-MLMSERVICE-20230530-4313735-1

PATIENT
  Sex: Female

DRUGS (9)
  1. RISPERDAL [Suspect]
     Active Substance: RISPERIDONE
     Indication: Schizophrenia
     Dosage: AT NIGHT
     Route: 065
     Dates: start: 2016
  2. RISPERDAL [Suspect]
     Active Substance: RISPERIDONE
     Route: 065
     Dates: start: 1997
  3. RISPERDAL [Suspect]
     Active Substance: RISPERIDONE
     Dosage: INCREASED TO 3MG AT NIGHT
     Route: 065
     Dates: start: 2016
  4. RISPERDAL [Suspect]
     Active Substance: RISPERIDONE
     Route: 065
  5. RISPERDAL [Suspect]
     Active Substance: RISPERIDONE
     Route: 065
     Dates: start: 2015
  6. PROCYCLIDINE [Suspect]
     Active Substance: PROCYCLIDINE
     Indication: Schizophrenia
     Dosage: BETWEEN 2016 AND 2022
     Route: 065
  7. CLONAZEPAM [Suspect]
     Active Substance: CLONAZEPAM
     Route: 065
  8. CLONAZEPAM [Suspect]
     Active Substance: CLONAZEPAM
     Route: 065
  9. CLONAZEPAM [Suspect]
     Active Substance: CLONAZEPAM
     Route: 065

REACTIONS (4)
  - Tardive dyskinesia [Recovering/Resolving]
  - Dystonia [Recovering/Resolving]
  - Loss of personal independence in daily activities [Recovering/Resolving]
  - Tic [Recovering/Resolving]

NARRATIVE: CASE EVENT DATE: 19970101
